FAERS Safety Report 20236346 (Version 1)
Quarter: 2021Q4

REPORT INFORMATION
  Report Type: Spontaneous
  Country: DE (occurrence: DE)
  Receive Date: 20211228
  Receipt Date: 20211228
  Transmission Date: 20220304
  Serious: Yes (Other)
  Sender: FDA-Public Use
  Company Number: None

PATIENT
  Age: 42 Year
  Sex: Female

DRUGS (11)
  1. TRASTUZUMAB [Suspect]
     Active Substance: TRASTUZUMAB
     Indication: Breast cancer
     Dosage: NEOADJUVANT DOSE:1
     Route: 065
     Dates: start: 201911, end: 202002
  2. TRASTUZUMAB [Suspect]
     Active Substance: TRASTUZUMAB
     Dosage: 4X T-DM1 Q3W DOSE:1
     Route: 065
     Dates: start: 20201111
  3. TRASTUZUMAB [Suspect]
     Active Substance: TRASTUZUMAB
     Dosage: COMPLETION OF TRASTUZUMAB AD 1 YEAR DOSE:1
     Route: 065
     Dates: start: 202002
  4. PERTUZUMAB [Suspect]
     Active Substance: PERTUZUMAB
     Indication: Breast cancer
     Dosage: DOSE:1
     Route: 065
     Dates: start: 202002
  5. PERTUZUMAB [Suspect]
     Active Substance: PERTUZUMAB
     Dosage: DOSE:1
     Route: 065
     Dates: start: 201911, end: 202002
  6. CYCLOPHOSPHAMIDE [Suspect]
     Active Substance: CYCLOPHOSPHAMIDE
     Indication: Breast cancer
     Dosage: UNKNOWN, NEOADJUVANT 4X ECDD
     Route: 065
  7. CYCLOPHOSPHAMIDE [Suspect]
     Active Substance: CYCLOPHOSPHAMIDE
     Indication: Ovarian cancer
  8. CYCLOPHOSPHAMIDE [Suspect]
     Active Substance: CYCLOPHOSPHAMIDE
     Indication: Leukaemia
  9. TAMOXIFEN [Suspect]
     Active Substance: TAMOXIFEN
     Indication: Breast cancer
     Dosage: UNKNOWN
     Route: 065
  10. ABRAXANE [Suspect]
     Active Substance: PACLITAXEL
     Indication: Breast cancer
     Dosage: UNKNOWN 12XPAC, 10X NAB-PAC WEEKLY, INTRAVENOUS INFUSION
     Route: 065
     Dates: start: 201911, end: 202002
  11. EPIRUBICIN HYDROCHLORIDE [Suspect]
     Active Substance: EPIRUBICIN HYDROCHLORIDE
     Indication: Breast cancer
     Dosage: UNKNOWN
     Route: 065

REACTIONS (3)
  - Polyneuropathy [Unknown]
  - Breast cancer metastatic [Unknown]
  - Off label use [Unknown]

NARRATIVE: CASE EVENT DATE: 20191101
